FAERS Safety Report 4871575-3 (Version None)
Quarter: 2005Q4

REPORT INFORMATION
  Report Type: 
  Country: None (occurrence: None)
  Receive Date: 20051230
  Receipt Date: 20051221
  Transmission Date: 20060501
  Serious: Yes (Life-Threatening, Other)
  Sender: FDA-Public Use
  Company Number: JP-2005-019085

PATIENT
  Age: 61 Year
  Sex: Male
  Weight: 67.3 kg

DRUGS (4)
  1. CAMPATH [Suspect]
     Indication: STEM CELL TRANSPLANT
     Dosage: INTRAVENOUS
     Route: 042
     Dates: start: 20050719, end: 20050724
  2. FLUDARA [Suspect]
     Indication: STEM CELL TRANSPLANT
     Dates: start: 20050701, end: 20050701
  3. BUSULFAN (BUSULFAN) [Concomitant]
  4. CYCLOSPORINE [Concomitant]

REACTIONS (19)
  - ACIDOSIS [None]
  - ADENOVIRAL HAEMORRHAGIC CYSTITIS [None]
  - ATRIAL FIBRILLATION [None]
  - ATRIAL FLUTTER [None]
  - BLOOD LACTATE DEHYDROGENASE INCREASED [None]
  - COMA [None]
  - CONVULSION [None]
  - DEPRESSED LEVEL OF CONSCIOUSNESS [None]
  - HAEMODIALYSIS [None]
  - HAEMOLYSIS [None]
  - HYDRONEPHROSIS [None]
  - NEPHRITIS INTERSTITIAL [None]
  - PYREXIA [None]
  - RENAL FAILURE ACUTE [None]
  - SOMNOLENCE [None]
  - STUPOR [None]
  - TACHYCARDIA [None]
  - THROMBOTIC MICROANGIOPATHY [None]
  - VENTRICULAR DYSFUNCTION [None]
